FAERS Safety Report 24327575 (Version 1)
Quarter: 2024Q3

REPORT INFORMATION
  Report Type: Spontaneous
  Country: US (occurrence: US)
  Receive Date: 20240917
  Receipt Date: 20240917
  Transmission Date: 20241017
  Serious: Yes (Hospitalization)
  Sender: CATALYST PHARMA
  Company Number: US-CATALYSTPHARMACEUTICALPARTNERS-US-CATA-24-01018

PATIENT
  Sex: Male

DRUGS (4)
  1. FYCOMPA [Suspect]
     Active Substance: PERAMPANEL
     Indication: Product used for unknown indication
     Dosage: 2MG DAILY, THEN INCREASED TO 4MG, AND GOT ALL THE WAY UP TO 10MG
     Route: 048
     Dates: start: 2023
  2. FYCOMPA [Suspect]
     Active Substance: PERAMPANEL
     Dosage: 10 MG DAILY
     Route: 048
     Dates: end: 202408
  3. FYCOMPA [Suspect]
     Active Substance: PERAMPANEL
     Dosage: 2 MG DAILY
     Route: 048
     Dates: start: 202408, end: 2024
  4. FYCOMPA [Suspect]
     Active Substance: PERAMPANEL
     Dosage: 8 MG DAILY
     Route: 048
     Dates: start: 2024

REACTIONS (2)
  - COVID-19 [Unknown]
  - Pneumonia [Not Recovered/Not Resolved]

NARRATIVE: CASE EVENT DATE: 20240101
